FAERS Safety Report 15392296 (Version 1)
Quarter: 2018Q3

REPORT INFORMATION
  Report Type: Spontaneous
  Country: US (occurrence: US)
  Receive Date: 20180910
  Receipt Date: 20180910
  Transmission Date: 20181010
  Serious: Yes (Hospitalization)
  Sender: FDA-Public Use
  Company Number: None

PATIENT
  Age: 71 Year
  Sex: Male

DRUGS (9)
  1. VOTRIENT [Suspect]
     Active Substance: PAZOPANIB HYDROCHLORIDE
     Indication: RENAL CANCER
     Route: 048
     Dates: start: 20180703
  2. COZAAR [Concomitant]
     Active Substance: LOSARTAN POTASSIUM
  3. TIMOPTIC [Concomitant]
     Active Substance: TIMOLOL MALEATE
  4. NORCO [Concomitant]
     Active Substance: ACETAMINOPHEN\HYDROCODONE BITARTRATE
  5. ZYLOPRIM [Concomitant]
     Active Substance: ALLOPURINOL
  6. XALATAN [Concomitant]
     Active Substance: LATANOPROST
  7. VERELAN [Concomitant]
     Active Substance: VERAPAMIL HYDROCHLORIDE
  8. CHLORTHALIDONE. [Concomitant]
     Active Substance: CHLORTHALIDONE
  9. INDOCIN [Concomitant]
     Active Substance: INDOMETHACIN

REACTIONS (3)
  - Hypertension [None]
  - Seizure [None]
  - Dyspnoea [None]

NARRATIVE: CASE EVENT DATE: 20180816
